FAERS Safety Report 6677919-4 (Version None)
Quarter: 2010Q2

REPORT INFORMATION
  Report Type: 
  Country: None (occurrence: None)
  Receive Date: 20100412
  Receipt Date: 20100330
  Transmission Date: 20101027
  Serious: Yes (Other)
  Sender: FDA-Public Use
  Company Number: ES-ELI_LILLY_AND_COMPANY-ES201003008354

PATIENT
  Sex: Female

DRUGS (6)
  1. FORTEO [Suspect]
     Indication: OSTEOPOROSIS
     Dosage: 20 UG, DAILY (1/D)
     Route: 058
     Dates: start: 20091201
  2. BUSCAPINA COMPOSITUM [Concomitant]
     Indication: PAIN
     Dosage: UNK, UNKNOWN
     Route: 048
  3. NOLOTIL [Concomitant]
     Indication: PAIN
     Dosage: UNK, UNKNOWN
     Route: 048
  4. NEURONTIN [Concomitant]
     Indication: MEMORY IMPAIRMENT
     Dosage: 600 MG, AS NEEDED
     Route: 048
     Dates: start: 20040101
  5. LEXATIN [Concomitant]
     Dosage: 1.5 MG, 3/D
     Route: 048
     Dates: start: 20040101
  6. VESICARE [Concomitant]
     Dosage: UNK, UNKNOWN
     Route: 065
     Dates: start: 20040101

REACTIONS (3)
  - GALLBLADDER PAIN [None]
  - PRURITUS GENERALISED [None]
  - RASH GENERALISED [None]
